FAERS Safety Report 16073688 (Version 5)
Quarter: 2019Q3

REPORT INFORMATION
  Report Type: Spontaneous
  Country: JP (occurrence: JP)
  Receive Date: 20190314
  Receipt Date: 20190926
  Transmission Date: 20191004
  Serious: Yes (Other)
  Sender: FDA-Public Use
  Company Number: JP-ASTRAZENECA-2019SE39093

PATIENT
  Age: 24937 Day
  Sex: Female
  Weight: 54 kg

DRUGS (2)
  1. THYRADIN S [Concomitant]
     Active Substance: LEVOTHYROXINE SODIUM
     Indication: HYPOTHYROIDISM
     Route: 048
  2. LYNPARZA [Suspect]
     Active Substance: OLAPARIB
     Indication: OVARIAN CANCER
     Route: 048
     Dates: start: 20181010, end: 20190612

REACTIONS (6)
  - Eczema asteatotic [Recovering/Resolving]
  - Dermatomyositis [Not Recovered/Not Resolved]
  - Hypoaesthesia [Recovering/Resolving]
  - Ovarian cancer recurrent [Unknown]
  - Stomatitis [Recovering/Resolving]
  - Hemiparesis [Unknown]

NARRATIVE: CASE EVENT DATE: 20190306
